FAERS Safety Report 5947563-2 (Version None)
Quarter: 2008Q4

REPORT INFORMATION
  Report Type: 
  Country: None (occurrence: None)
  Receive Date: 20081110
  Receipt Date: 20081106
  Transmission Date: 20090506
  Serious: Yes (Life-Threatening, Hospitalization)
  Sender: FDA-Public Use
  Company Number: PHHO2003US10855

PATIENT
  Sex: Female
  Weight: 35 kg

DRUGS (5)
  1. TRILEPTAL [Suspect]
     Indication: BIPOLAR DISORDER
     Dosage: 900 MG, QD
     Route: 048
     Dates: start: 20030820, end: 20030825
  2. PROZAC [Concomitant]
     Indication: DEPRESSION
  3. TYLENOL [Concomitant]
     Indication: PAIN
     Dosage: 10 X 500MG
  4. MYLANTA [Concomitant]
     Indication: DYSPEPSIA
  5. MILK OF MAGNESIA [Concomitant]
     Indication: CONSTIPATION

REACTIONS (4)
  - DISEASE PROGRESSION [None]
  - DRUG INEFFECTIVE [None]
  - MAJOR DEPRESSION [None]
  - SUICIDE ATTEMPT [None]
